FAERS Safety Report 7910080-4 (Version None)
Quarter: 2011Q4

REPORT INFORMATION
  Report Type: 
  Country: None (occurrence: None)
  Receive Date: 20111111
  Receipt Date: 20111107
  Transmission Date: 20120403
  Serious: Yes (Hospitalization, Other)
  Sender: FDA-Public Use
  Company Number: US-ABBOTT-11P-163-0872337-00

PATIENT
  Sex: Female
  Weight: 78.088 kg

DRUGS (6)
  1. HUMIRA [Suspect]
     Indication: PSORIASIS
     Dates: start: 20100602, end: 20100602
  2. HUMIRA [Suspect]
     Dates: start: 20100609, end: 20111020
  3. POTASSIUM [Concomitant]
     Indication: MINERAL SUPPLEMENTATION
  4. HYDROCHLOROTHIAZIDE [Concomitant]
     Indication: HYPERTENSION
  5. HUMIRA [Suspect]
     Dates: start: 20101117, end: 20111026
  6. LORAZEPAM [Concomitant]
     Indication: ANXIETY

REACTIONS (8)
  - URINARY TRACT INFECTION [None]
  - OSTEOARTHRITIS [None]
  - RASH MACULAR [None]
  - MICTURITION URGENCY [None]
  - BASAL CELL CARCINOMA [None]
  - PSORIASIS [None]
  - IMPAIRED HEALING [None]
  - SCAR [None]
